FAERS Safety Report 11510858 (Version 1)
Quarter: 2015Q3

REPORT INFORMATION
  Report Type: Spontaneous
  Country: US (occurrence: US)
  Receive Date: 20150915
  Receipt Date: 20150915
  Transmission Date: 20151125
  Serious: Yes (Other)
  Sender: FDA-Public Use
  Company Number: US-GLAXOSMITHKLINE-US2015GSK132072

PATIENT

DRUGS (2)
  1. LAMICTAL [Suspect]
     Active Substance: LAMOTRIGINE
  2. LEVETIRACETAM. [Suspect]
     Active Substance: LEVETIRACETAM

REACTIONS (8)
  - Depression [Unknown]
  - Condition aggravated [Unknown]
  - Crying [Unknown]
  - Abnormal behaviour [Unknown]
  - Mood swings [Unknown]
  - Aggression [Unknown]
  - Anxiety [Unknown]
  - Suicidal ideation [Unknown]

NARRATIVE: CASE EVENT DATE: 2014
